FAERS Safety Report 9723826 (Version 1)
Quarter: 2013Q4

REPORT INFORMATION
  Report Type: Spontaneous
  Country: US (occurrence: US)
  Receive Date: 20131202
  Receipt Date: 20131202
  Transmission Date: 20140711
  Serious: Yes (Hospitalization, Other)
  Sender: FDA-Public Use
  Company Number: US-GILEAD-2013-0088693

PATIENT
  Age: 66 Year
  Sex: Male

DRUGS (4)
  1. LETAIRIS [Suspect]
     Indication: PRODUCT USED FOR UNKNOWN INDICATION
     Dosage: 5 MG, UNK
     Dates: start: 20130618
  2. PROVENTIL                          /00139501/ [Concomitant]
  3. PREDNISONE [Concomitant]
  4. ADVAIR [Concomitant]

REACTIONS (2)
  - Pneumonia [Unknown]
  - Dyspnoea [Not Recovered/Not Resolved]
